FAERS Safety Report 5146339-6 (Version None)
Quarter: 2006Q4

REPORT INFORMATION
  Report Type: 
  Country: None (occurrence: None)
  Receive Date: 20061108
  Receipt Date: 20061030
  Transmission Date: 20070319
  Serious: Yes (Hospitalization)
  Sender: FDA-Public Use
  Company Number: SE-ABBOTT-06P-150-0348421-00

PATIENT
  Age: 49 Year
  Sex: Male

DRUGS (1)
  1. LIPANTHYL CAPSULES [Suspect]
     Indication: BLOOD TRIGLYCERIDES INCREASED
     Route: 048
     Dates: start: 20000101

REACTIONS (1)
  - DERMATOMYOSITIS [None]
